FAERS Safety Report 6451204-8 (Version None)
Quarter: 2009Q4

REPORT INFORMATION
  Report Type: 
  Country: None (occurrence: None)
  Receive Date: 20091123
  Receipt Date: 20091116
  Transmission Date: 20100525
  Serious: Yes (Other)
  Sender: FDA-Public Use
  Company Number: FR-PFIZER INC-2009297756

PATIENT
  Age: 77 Year
  Sex: Male

DRUGS (6)
  1. TAHOR [Suspect]
     Indication: CORONARY ARTERY DISEASE
     Dosage: 20 MG, 1X/DAY
     Route: 048
     Dates: start: 20070101, end: 20090810
  2. ASPEGIC 1000 [Concomitant]
  3. PLAVIX [Concomitant]
  4. DETENSIEL [Concomitant]
  5. DIAMICRON [Concomitant]
  6. XATRAL [Concomitant]

REACTIONS (1)
  - CYTOLYTIC HEPATITIS [None]
